FAERS Safety Report 5677228-6 (Version None)
Quarter: 2008Q1

REPORT INFORMATION
  Report Type: 
  Country: None (occurrence: None)
  Receive Date: 20080324
  Receipt Date: 20080318
  Transmission Date: 20080703
  Serious: Yes (Hospitalization)
  Sender: FDA-Public Use
  Company Number: US-ASTRAZENECA-2008UW05459

PATIENT
  Age: 67 Year
  Sex: Male
  Weight: 88 kg

DRUGS (6)
  1. ATACAND HCT [Suspect]
     Dosage: 32/12.5 MG QD
     Route: 048
  2. ACIPHEX [Concomitant]
  3. AMBIEN [Concomitant]
  4. COREG [Concomitant]
  5. PLAVIX [Concomitant]
  6. LIPITOR [Concomitant]

REACTIONS (2)
  - ALOPECIA [None]
  - RHABDOMYOLYSIS [None]
